FAERS Safety Report 9393711 (Version 1)
Quarter: 2013Q3

REPORT INFORMATION
  Report Type: Report from Study
  Country: CA (occurrence: CA)
  Receive Date: 20130710
  Receipt Date: 20130710
  Transmission Date: 20140515
  Serious: Yes (Other)
  Sender: FDA-Public Use
  Company Number: CA-JNJFOC-20130703798

PATIENT
  Age: 38 Year
  Sex: Male

DRUGS (3)
  1. STELARA [Suspect]
     Indication: PSORIASIS
     Dosage: AT WEEK 4
     Dates: start: 20130605
  2. CLOBEX [Concomitant]
     Route: 061
  3. BETAMETHASONE VALERATE [Concomitant]
     Route: 061

REACTIONS (1)
  - Systemic lupus erythematosus rash [Unknown]
